FAERS Safety Report 20908200 (Version 6)
Quarter: 2022Q4

REPORT INFORMATION
  Report Type: Report from Study
  Country: US (occurrence: US)
  Receive Date: 20220602
  Receipt Date: 20221031
  Transmission Date: 20230112
  Serious: Yes (Hospitalization, Other)
  Sender: FDA-Public Use
  Company Number: US-ABBVIE-22K-163-4388058-00

PATIENT
  Sex: Female
  Weight: 85.28 kg

DRUGS (20)
  1. IMBRUVICA [Suspect]
     Active Substance: IBRUTINIB
     Indication: Chronic lymphocytic leukaemia
     Route: 048
     Dates: start: 202206
  2. IMBRUVICA [Suspect]
     Active Substance: IBRUTINIB
     Indication: Chronic lymphocytic leukaemia
     Route: 048
     Dates: start: 20150708
  3. IMBRUVICA [Suspect]
     Active Substance: IBRUTINIB
     Indication: Chronic lymphocytic leukaemia
     Route: 048
     Dates: start: 20180601
  4. IMBRUVICA [Suspect]
     Active Substance: IBRUTINIB
     Indication: Chronic lymphocytic leukaemia
     Route: 048
     Dates: start: 20150708, end: 20180601
  5. VESICARE [Concomitant]
     Active Substance: SOLIFENACIN SUCCINATE
     Indication: Bladder spasm
  6. CLOBETASOL [Concomitant]
     Active Substance: CLOBETASOL
     Indication: Blister
  7. VFEND [Concomitant]
     Active Substance: VORICONAZOLE
     Indication: Fusarium infection
  8. VASELINE PURE [Concomitant]
     Active Substance: PETROLATUM
     Indication: Blister
  9. LIPITOR [Concomitant]
     Active Substance: ATORVASTATIN CALCIUM
     Indication: Blood cholesterol
  10. Bactrim DS 800-16 [Concomitant]
     Indication: Wound
  11. VANCOMYCIN [Concomitant]
     Active Substance: VANCOMYCIN
     Indication: Wound
  12. LISINOPRIL [Concomitant]
     Active Substance: LISINOPRIL
     Indication: Hypertension
  13. CARAFATE [Concomitant]
     Active Substance: SUCRALFATE
     Indication: Nausea
  14. PROTONIX [Concomitant]
     Active Substance: PANTOPRAZOLE SODIUM
     Indication: Abdominal discomfort
  15. COREG [Concomitant]
     Active Substance: CARVEDILOL
     Indication: Hypertension
  16. LEVOTHYROXINE [Concomitant]
     Active Substance: LEVOTHYROXINE
     Indication: Hypothyroidism
  17. MODERNA COVID-19 VACCINE [Concomitant]
     Active Substance: ELASOMERAN
     Indication: COVID-19 immunisation
     Dosage: FIRST DOSE(FREQUENCY- ONE IN ONCE)
     Route: 030
     Dates: start: 20200106, end: 20200106
  18. MODERNA COVID-19 VACCINE [Concomitant]
     Active Substance: ELASOMERAN
     Indication: COVID-19 immunisation
     Dosage: SECOND DOSE(FREQUENCY- ONE IN ONCE)
     Route: 030
     Dates: start: 20200201, end: 20200201
  19. MODERNA COVID-19 VACCINE [Concomitant]
     Active Substance: ELASOMERAN
     Indication: COVID-19 immunisation
     Dosage: FIRST BOOSTER DOSE(FREQUENCY- ONE IN ONCE)
     Route: 030
     Dates: start: 20210818, end: 20210818
  20. MODERNA COVID-19 VACCINE [Concomitant]
     Active Substance: ELASOMERAN
     Indication: COVID-19 immunisation
     Dosage: SECOND BOOSTER DOSE(FREQUENCY- ONE IN ONCE)
     Route: 030
     Dates: start: 20220406, end: 20220406

REACTIONS (13)
  - Loss of consciousness [Recovered/Resolved]
  - Limb injury [Recovering/Resolving]
  - Fusarium infection [Unknown]
  - Blister [Recovered/Resolved]
  - Hypoaesthesia [Unknown]
  - Limb injury [Recovering/Resolving]
  - Infusion related reaction [Recovered/Resolved]
  - Fungal skin infection [Recovering/Resolving]
  - Wound secretion [Not Recovered/Not Resolved]
  - Fusarium infection [Recovered/Resolved]
  - Nausea [Recovered/Resolved]
  - Blister [Recovering/Resolving]
  - Skin burning sensation [Recovered/Resolved]

NARRATIVE: CASE EVENT DATE: 20220101
